FAERS Safety Report 9024884 (Version 2)
Quarter: 2012Q4

REPORT INFORMATION
  Report Type: Spontaneous
  Country: US (occurrence: None)
  Receive Date: 20121231
  Receipt Date: 20121231
  Transmission Date: 20130627
  Serious: Yes (Death, Hospitalization, Other)
  Sender: FDA-Public Use
  Company Number: US-JNJFOC-20121206543

PATIENT
  Age: 73 Year
  Sex: Female
  Weight: 62 kg

DRUGS (7)
  1. DECITABINE [Suspect]
     Indication: ACUTE MYELOID LEUKEMIA
     Dosage: 20 MG/M2, IN 1 CYCLICAL, INTRAVENOUS
     Dates: start: 20121105
  2. DECITABINE [Suspect]
     Indication: ACUTE MYELOID LEUKEMIA
     Dosage: 33 mg, in 1 Cyclical, Intravenous
     Dates: start: 20121115
  3. VELCADE [Suspect]
     Indication: ACUTE MYELOID LEUKEMIA
     Dosage: 1.3 MG/M2, IN 1 CYCLICAL, SUBCUTANEOUS
     Dates: start: 20121105
  4. VELCADE [Suspect]
     Indication: ACUTE MYELOID LEUKEMIA
     Dosage: 2.2 mg, in 1 Cyclical, Subcutaneous
     Dates: start: 20121105
  5. LEVAQUIN (LEVOFLOXACIN) [Concomitant]
  6. ATIVAN (LORAZEPAM) [Concomitant]
  7. VFEND (VORICONAZOLE) [Concomitant]

REACTIONS (27)
  - Lethargy [None]
  - Somnolence [None]
  - Pleural effusion [None]
  - Pneumonia [None]
  - Visual impairment [None]
  - Hallucination [None]
  - Hypoxia [None]
  - Metabolic acidosis [None]
  - Renal failure acute [None]
  - Atelectasis [None]
  - Pulmonary oedema [None]
  - Fluid overload [None]
  - Pulmonary alveolar haemorrhage [None]
  - Thrombocytopenia [None]
  - Organising pneumonia [None]
  - Staphylococcal bacteraemia [None]
  - Device related infection [None]
  - Acute myeloid leukaemia recurrent [None]
  - Delirium [None]
  - Psychotic disorder [None]
  - Therapeutic response decreased [None]
  - Aspiration [None]
  - Confusional state [None]
  - Pneumonitis [None]
  - Sedation [None]
  - Tumour lysis syndrome [None]
  - Respiratory failure [None]
